FAERS Safety Report 10311989 (Version 2)
Quarter: 2014Q3

REPORT INFORMATION
  Report Type: Spontaneous
  Country: IT (occurrence: None)
  Receive Date: 20140714
  Receipt Date: 20140813
  Transmission Date: 20150326
  Serious: Yes (Hospitalization, Other)
  Sender: FDA-Public Use
  Company Number: AUR-APL-2014-07351

PATIENT
  Age: 43 Year
  Sex: Female

DRUGS (4)
  1. PAROXETINE [Suspect]
     Active Substance: PAROXETINE\PAROXETINE HYDROCHLORIDE
     Indication: PANIC DISORDER
     Dosage: 3 DF, UNK, UNKNOWN
  2. PAROXETINE [Suspect]
     Active Substance: PAROXETINE\PAROXETINE HYDROCHLORIDE
     Indication: AGORAPHOBIA
     Dosage: 3 DF, UNK, UNKNOWN
  3. QUETIAPINE (QUETIAPINE) [Concomitant]
     Active Substance: QUETIAPINE
  4. PAROXETINE [Suspect]
     Active Substance: PAROXETINE\PAROXETINE HYDROCHLORIDE
     Indication: DEPRESSION
     Dosage: 3 DF, UNK, UNKNOWN

REACTIONS (12)
  - Gastrointestinal disorder [None]
  - Disturbance in attention [None]
  - Erosive oesophagitis [None]
  - Musculoskeletal stiffness [None]
  - Abdominal pain upper [None]
  - Drug withdrawal syndrome [None]
  - Hypoaesthesia [None]
  - Panic attack [None]
  - Agitation [None]
  - Anxiety [None]
  - Depersonalisation [None]
  - Tremor [None]
